FAERS Safety Report 7504488-9 (Version None)
Quarter: 2011Q2

REPORT INFORMATION
  Report Type: 
  Country: None (occurrence: None)
  Receive Date: 20110525
  Receipt Date: 20110518
  Transmission Date: 20111010
  Serious: No
  Sender: FDA-Public Use
  Company Number: US-B.I. PHARMACEUTICALS,INC./RIDGEFIELD-2011-BP-13479BP

PATIENT
  Sex: Female

DRUGS (7)
  1. CRESTOR [Concomitant]
     Indication: BLOOD CHOLESTEROL INCREASED
     Route: 048
  2. LUMIGAN [Concomitant]
     Indication: GLAUCOMA
  3. NORVASC [Concomitant]
     Indication: HYPERTENSION
     Route: 048
  4. TAMBOCOR [Concomitant]
     Indication: CORONARY ARTERY DISEASE
     Route: 048
  5. PRADAXA [Suspect]
     Indication: ATRIAL FIBRILLATION
     Dosage: 300 MG
     Route: 048
     Dates: start: 20110201
  6. PAXIL [Concomitant]
     Indication: DEPRESSION
     Route: 048
  7. COSOPT [Concomitant]
     Indication: GLAUCOMA

REACTIONS (2)
  - ASTHENIA [None]
  - HYPOTENSION [None]
